FAERS Safety Report 20684362 (Version 1)
Quarter: 2022Q2

REPORT INFORMATION
  Report Type: Spontaneous
  Country: US (occurrence: None)
  Receive Date: 20220405
  Receipt Date: 20220405
  Transmission Date: 20220721
  Serious: No
  Sender: FDA-Public Use
  Company Number: None

PATIENT
  Age: 46 Year
  Sex: Female

DRUGS (2)
  1. DEVICE [Suspect]
     Active Substance: DEVICE
     Indication: Pulmonary arterial hypertension
     Dosage: OTHER QUANTITY :   VELETRI L 10.5NG/KG/MIN;?OTHER FREQUENCY : CONTINUOUS;?
     Route: 042
     Dates: start: 20211214
  2. VELETRI [Suspect]
     Active Substance: EPOPROSTENOL
     Indication: Product used for unknown indication
     Dosage: VELETRI 10.5NG/KG/MIN  CONTINUOUS INTRAVENOUS  ???

REACTIONS (7)
  - Vomiting [None]
  - Diarrhoea [None]
  - Flushing [None]
  - Device alarm issue [None]
  - Device information output issue [None]
  - Device infusion issue [None]
  - Device malfunction [None]

NARRATIVE: CASE EVENT DATE: 20220403
